FAERS Safety Report 11070890 (Version 1)
Quarter: 2015Q2

REPORT INFORMATION
  Report Type: Spontaneous
  Country: US (occurrence: US)
  Receive Date: 20150428
  Receipt Date: 20150428
  Transmission Date: 20150821
  Serious: Yes (Other)
  Sender: FDA-Public Use
  Company Number: US-AUROBINDO-AUR-APU-2015-03580

PATIENT
  Sex: Female
  Weight: 80.73 kg

DRUGS (1)
  1. MINOCYCLINE HYDROCHLORIDE CAPSULES USP 100 MG [Suspect]
     Active Substance: MINOCYCLINE HYDROCHLORIDE
     Indication: ROSACEA
     Dosage: 100 MG, TWO TIMES A DAY
     Route: 048
     Dates: end: 20150413

REACTIONS (5)
  - Scar [Not Recovered/Not Resolved]
  - Tongue discolouration [Not Recovered/Not Resolved]
  - Swelling face [Not Recovered/Not Resolved]
  - Pigmentation disorder [Not Recovered/Not Resolved]
  - Lip swelling [Not Recovered/Not Resolved]
